FAERS Safety Report 5248388-6 (Version None)
Quarter: 2007Q1

REPORT INFORMATION
  Report Type: 
  Country: None (occurrence: None)
  Receive Date: 20070222
  Receipt Date: 20070213
  Transmission Date: 20070707
  Serious: Yes (Hospitalization)
  Sender: FDA-Public Use
  Company Number: 2007PV029937

PATIENT
  Age: 53 Year
  Sex: Male
  Weight: 166.4701 kg

DRUGS (5)
  1. BYETTA [Suspect]
     Indication: DIABETES MELLITUS NON-INSULIN-DEPENDENT
     Dosage: SEE IMAGE
  2. METFORMIN HCL [Concomitant]
  3. AVANDIA [Concomitant]
  4. GLIMEPIRIDE [Concomitant]
  5. PREVACID [Concomitant]

REACTIONS (3)
  - FEELING HOT [None]
  - POST PROCEDURAL COMPLICATION [None]
  - WEIGHT DECREASED [None]
